FAERS Safety Report 25897244 (Version 3)
Quarter: 2025Q4

REPORT INFORMATION
  Report Type: Spontaneous
  Country: EU (occurrence: EU)
  Receive Date: 20251008
  Receipt Date: 20251013
  Transmission Date: 20260119
  Serious: Yes (Life-Threatening, Hospitalization, Other)
  Sender: SANDOZ
  Company Number: EU-MLMSERVICE-20250922-PI653244-00140-1

PATIENT
  Age: 28 Year
  Sex: Female

DRUGS (13)
  1. ACTINOMYCIN D [Suspect]
     Active Substance: DACTINOMYCIN
     Indication: Choriocarcinoma
     Dosage: ON DAY 1 AND 2, EVERY 14 DAYS, 7 CYCLES  OF EMA/CO
     Route: 042
  2. ACTINOMYCIN D [Suspect]
     Active Substance: DACTINOMYCIN
     Indication: Metastases to lung
     Dosage: EVERY 14 DAYS (7 CYCLES OF EMA-CO)
     Route: 065
  3. LEUCOVORIN CALCIUM [Suspect]
     Active Substance: LEUCOVORIN CALCIUM
     Indication: Choriocarcinoma
     Dosage: 15 MG ORALLY FOUR TIMES ON DAY 2, EVERY  14 DAYS, 7 CYCLES OF EMA/CO
     Route: 048
  4. LEUCOVORIN CALCIUM [Suspect]
     Active Substance: LEUCOVORIN CALCIUM
     Indication: Metastases to lung
  5. CYCLOPHOSPHAMIDE [Suspect]
     Active Substance: CYCLOPHOSPHAMIDE
     Indication: Choriocarcinoma
     Dosage: 600 MG/M2 INTRAVENOUS ON DAY 8, 7 CYCLES OF EMA/CO
     Route: 042
  6. CYCLOPHOSPHAMIDE [Suspect]
     Active Substance: CYCLOPHOSPHAMIDE
     Indication: Metastases to lung
     Dosage: EVERY 14 DAYS (7 CYCLES OF EMA-CO)
     Route: 065
  7. ETOPOSIDE [Suspect]
     Active Substance: ETOPOSIDE
     Indication: Choriocarcinoma
     Dosage: 100 MG/M2 ON DAYS 1 AND 2, EVERY 14  DAYS, 7 CYCLES OF EMA/CO
     Route: 065
  8. ETOPOSIDE [Suspect]
     Active Substance: ETOPOSIDE
     Indication: Metastases to lung
     Dosage: EVERY 14 DAYS (7 CYCLES OF EMA-CO)
     Route: 065
  9. METHOTREXATE [Suspect]
     Active Substance: METHOTREXATE
     Indication: Metastases to lung
     Dosage: 100 MG/M2 INTRAVENOUS BOLUS FOLLOWED BY  A 12-HOUR INFUSION OF 200 MG/M2 ON DAY  1, EVERY 14 DAYS, 7
     Route: 042
  10. METHOTREXATE [Suspect]
     Active Substance: METHOTREXATE
     Dosage: EVERY 14 DAYS (7 CYCLES OF EMA-CO)
     Route: 065
  11. METHOTREXATE [Suspect]
     Active Substance: METHOTREXATE
     Indication: Choriocarcinoma
     Dosage: 100 MG/M2 INTRAVENOUS BOLUS FOLLOWED BY  A 12-HOUR INFUSION OF 200 MG/M2 ON DAY  1, EVERY 14 DAYS, 7
     Route: 042
  12. VINCRISTINE [Suspect]
     Active Substance: VINCRISTINE
     Indication: Choriocarcinoma
     Dosage: 1 MG/M2 INTRAVENOUS BOLUS ON DAY 8,  EVERY 14 DAYS, 7 CYCLES OF EMA/CO
     Route: 042
  13. VINCRISTINE [Suspect]
     Active Substance: VINCRISTINE
     Indication: Metastases to lung
     Dosage: EVERY 14 DAYS (7 CYCLES OF EMA-CO)
     Route: 065

REACTIONS (4)
  - Vaginal haemorrhage [Recovered/Resolved]
  - Subclavian vein thrombosis [Unknown]
  - Condition aggravated [Recovering/Resolving]
  - Medical device site thrombosis [Unknown]
